FAERS Safety Report 14395726 (Version 1)
Quarter: 2018Q1

REPORT INFORMATION
  Report Type: Spontaneous
  Country: UM (occurrence: FR)
  Receive Date: 20180116
  Receipt Date: 20180116
  Transmission Date: 20180509
  Serious: Yes (Other)
  Sender: FDA-Public Use
  Company Number: FR-IPSEN BIOPHARMACEUTICALS, INC.-2018-00325

PATIENT
  Age: 63 Year
  Sex: Male
  Weight: 108 kg

DRUGS (8)
  1. ATORVASTATINE [Concomitant]
     Active Substance: ATORVASTATIN
     Indication: ANGIOPATHY
  2. INSULIN ASPARTE BIPHASIC [Concomitant]
     Indication: DIABETES MELLITUS
  3. CABERGOLINE. [Concomitant]
     Active Substance: CABERGOLINE
     Indication: DOPAMINERGIC DRUG THERAPY
  4. SOMATULINE AUTOGEL 120MG [Suspect]
     Active Substance: LANREOTIDE ACETATE
     Indication: PITUITARY TUMOUR BENIGN
     Dosage: 120 MG
     Route: 042
  5. CABERGOLINE. [Concomitant]
     Active Substance: CABERGOLINE
     Indication: PITUITARY TUMOUR BENIGN
  6. METFORMIN [Concomitant]
     Active Substance: METFORMIN HYDROCHLORIDE
     Indication: DIABETES MELLITUS
  7. SOMATULINE AUTOGEL 120MG [Suspect]
     Active Substance: LANREOTIDE ACETATE
     Indication: ACROMEGALY
  8. CLOPIDOGREL [Concomitant]
     Active Substance: CLOPIDOGREL BISULFATE
     Indication: ANGIOPATHY

REACTIONS (14)
  - Hypertension [Not Recovered/Not Resolved]
  - Mental disorder [Unknown]
  - Sleep apnoea syndrome [Not Recovered/Not Resolved]
  - Blood prolactin increased [Unknown]
  - Maculopathy [Not Recovered/Not Resolved]
  - Paraesthesia [Not Recovered/Not Resolved]
  - Diabetes mellitus [Not Recovered/Not Resolved]
  - Vitreous haemorrhage [Not Recovered/Not Resolved]
  - Cardiovascular disorder [Unknown]
  - Treatment noncompliance [Unknown]
  - Drug ineffective [Unknown]
  - Disease complication [Unknown]
  - Hypoaesthesia [Not Recovered/Not Resolved]
  - Incorrect route of drug administration [Unknown]

NARRATIVE: CASE EVENT DATE: 2012
